FAERS Safety Report 4506544-6 (Version None)
Quarter: 2004Q4

REPORT INFORMATION
  Report Type: 
  Country: None (occurrence: None)
  Receive Date: 20041122
  Receipt Date: 20041111
  Transmission Date: 20050328
  Serious: Yes (Death)
  Sender: FDA-Public Use
  Company Number: 200418727US

PATIENT
  Age: 83 Year
  Sex: Female

DRUGS (7)
  1. LASIX [Suspect]
     Indication: OEDEMA PERIPHERAL
     Dosage: DOSE: UNK
     Route: 048
     Dates: start: 20010101
  2. LASIX [Suspect]
     Indication: PULMONARY OEDEMA
     Dosage: DOSE: UNK
     Route: 048
     Dates: start: 20010101
  3. ZAROXOLYN [Concomitant]
     Route: 048
  4. PROVIGIL [Concomitant]
     Dosage: DOSE: UNK
  5. SINEMET [Concomitant]
     Dosage: DOSE: UNK
  6. COUMADIN [Concomitant]
     Dosage: DOSE: UNK
  7. ANTIBIOTICS [Concomitant]
     Dosage: DOSE: UNK

REACTIONS (8)
  - BLOOD PRESSURE DECREASED [None]
  - CARDIAC FAILURE CONGESTIVE [None]
  - LIVER DISORDER [None]
  - PYELONEPHRITIS [None]
  - RENAL DISORDER [None]
  - RENAL FAILURE [None]
  - SEDATION [None]
  - SOMNOLENCE [None]
